FAERS Safety Report 4772420-7 (Version None)
Quarter: 2005Q3

REPORT INFORMATION
  Report Type: 
  Country: None (occurrence: None)
  Receive Date: 20050919
  Receipt Date: 20050906
  Transmission Date: 20060218
  Serious: Yes (Hospitalization)
  Sender: FDA-Public Use
  Company Number: CA-JNJFOC-20030803590

PATIENT
  Sex: Male

DRUGS (1)
  1. REMICADE [Suspect]
     Indication: CROHN'S DISEASE
     Route: 042

REACTIONS (7)
  - COMPRESSION FRACTURE [None]
  - DEEP VEIN THROMBOSIS [None]
  - HEAD INJURY [None]
  - ILIAC VEIN THROMBOSIS [None]
  - PULMONARY EMBOLISM [None]
  - SYNCOPE [None]
  - URINARY TRACT INFECTION [None]
